FAERS Safety Report 6825368-8 (Version None)
Quarter: 2010Q3

REPORT INFORMATION
  Report Type: 
  Country: None (occurrence: None)
  Receive Date: 20100708
  Receipt Date: 20070117
  Transmission Date: 20110219
  Serious: No
  Sender: FDA-Public Use
  Company Number: US-PFIZER INC-2006148111

PATIENT
  Sex: Male
  Weight: 78.02 kg

DRUGS (11)
  1. CHANTIX [Suspect]
     Indication: SMOKING CESSATION THERAPY
     Route: 048
     Dates: start: 20061122, end: 20061101
  2. ASPIRIN [Concomitant]
  3. NEXIUM [Concomitant]
  4. PRIMIDONE [Concomitant]
  5. SPIRONOLACTONE [Concomitant]
  6. KLONOPIN [Concomitant]
  7. TOPAMAX [Concomitant]
  8. MICARDIS [Concomitant]
  9. NORVASC [Concomitant]
  10. LESCOL XL [Concomitant]
  11. TESTOSTERONE [Concomitant]

REACTIONS (1)
  - TREMOR [None]
